FAERS Safety Report 6763894-0 (Version None)
Quarter: 2010Q2

REPORT INFORMATION
  Report Type: 
  Country: None (occurrence: None)
  Receive Date: 20100610
  Receipt Date: 20100601
  Transmission Date: 20101027
  Serious: Yes (Other)
  Sender: FDA-Public Use
  Company Number: JP-PFIZER INC-2010052067

PATIENT
  Age: 70 Year
  Sex: Male

DRUGS (9)
  1. SULPERAZON [Suspect]
     Indication: PLEURISY
     Dosage: UNK
     Route: 042
     Dates: start: 20100402, end: 20100407
  2. NAUZELIN [Concomitant]
     Dosage: UNK
     Dates: end: 20100412
  3. BIO THREE [Concomitant]
  4. MAGNESIUM OXIDE HEAVY [Concomitant]
     Dosage: UNK
     Dates: end: 20100405
  5. FAMOTIDINE [Concomitant]
  6. SOLDOL E [Concomitant]
  7. RIVOTRIL [Concomitant]
  8. LASIX [Concomitant]
  9. PENTCILLIN [Concomitant]
     Dosage: UNK
     Dates: end: 20100402

REACTIONS (1)
  - PLATELET COUNT DECREASED [None]
